FAERS Safety Report 12646721 (Version 3)
Quarter: 2016Q3

REPORT INFORMATION
  Report Type: Spontaneous
  Country: US (occurrence: US)
  Receive Date: 20160812
  Receipt Date: 20160908
  Transmission Date: 20161109
  Serious: Yes (Death, Hospitalization)
  Sender: FDA-Public Use
  Company Number: US-BAUSCH-BL-2016-019026

PATIENT
  Age: 74 Year
  Sex: Male
  Weight: 81.72 kg

DRUGS (2)
  1. PROVENGE [Suspect]
     Active Substance: SIPULEUCEL-T
     Indication: PROSTATE CANCER
     Route: 042
     Dates: start: 20160708, end: 20160708
  2. PROVENGE [Suspect]
     Active Substance: SIPULEUCEL-T
     Route: 042
     Dates: start: 20160722, end: 20160722

REACTIONS (7)
  - Sepsis [Unknown]
  - Wheezing [Unknown]
  - Bacteraemia [Not Recovered/Not Resolved]
  - Mental status changes [Unknown]
  - Myocardial infarction [Fatal]
  - Pneumonia [Not Recovered/Not Resolved]
  - Device related infection [Not Recovered/Not Resolved]

NARRATIVE: CASE EVENT DATE: 201608
